FAERS Safety Report 20175586 (Version 1)
Quarter: 2021Q4

REPORT INFORMATION
  Report Type: Spontaneous
  Country: US (occurrence: None)
  Receive Date: 20211209
  Receipt Date: 20211209
  Transmission Date: 20220303
  Serious: No
  Sender: FDA-Public Use
  Company Number: None

PATIENT
  Age: 80 Year
  Sex: Female
  Weight: 93.6 kg

DRUGS (6)
  1. RYBELSUS [Suspect]
     Active Substance: SEMAGLUTIDE
     Indication: Type 2 diabetes mellitus
     Dosage: FREQUENCY : DAILY;?
     Route: 048
     Dates: start: 20211103, end: 20211114
  2. METOPROLOL [Concomitant]
     Active Substance: METOPROLOL
  3. BRIMONIDINE [Concomitant]
     Active Substance: BRIMONIDINE TARTRATE
  4. ROSUVASTATIN [Concomitant]
     Active Substance: ROSUVASTATIN
  5. SPIRONOLACTONE [Concomitant]
     Active Substance: SPIRONOLACTONE
  6. ELIQUIS [Concomitant]
     Active Substance: APIXABAN

REACTIONS (11)
  - Dizziness [None]
  - Insomnia [None]
  - Fatigue [None]
  - Asthenia [None]
  - Gait disturbance [None]
  - Hypoglycaemia [None]
  - Dry eye [None]
  - Ocular hyperaemia [None]
  - Hypoaesthesia [None]
  - Paraesthesia [None]
  - Mydriasis [None]
